FAERS Safety Report 8030022-3 (Version None)
Quarter: 2012Q1

REPORT INFORMATION
  Report Type: 
  Country: None (occurrence: None)
  Receive Date: 20120109
  Receipt Date: 20120104
  Transmission Date: 20120608
  Serious: Yes (Hospitalization, Other)
  Sender: FDA-Public Use
  Company Number: US-BRISTOL-MYERS SQUIBB COMPANY-16329898

PATIENT
  Age: 67 Year
  Sex: Female
  Weight: 64 kg

DRUGS (1)
  1. ERBITUX [Suspect]
     Indication: GASTRIC CANCER

REACTIONS (2)
  - INTESTINAL OBSTRUCTION [None]
  - NEOPLASM MALIGNANT [None]
